FAERS Safety Report 10167896 (Version 3)
Quarter: 2014Q2

REPORT INFORMATION
  Report Type: Report from Study
  Country: SG (occurrence: SG)
  Receive Date: 20140512
  Receipt Date: 20140523
  Transmission Date: 20141212
  Serious: Yes (Death)
  Sender: FDA-Public Use
  Company Number: PHHY2013SG107160

PATIENT
  Age: 86 Year
  Sex: Female

DRUGS (2)
  1. GLIVEC [Suspect]
     Indication: CHRONIC MYELOID LEUKAEMIA
     Dosage: 400 MG, UNK
     Dates: start: 201205
  2. GLIVEC [Suspect]
     Dosage: 200 MG, UNK
     Dates: start: 20120531, end: 20140212

REACTIONS (2)
  - Death [Fatal]
  - Drug intolerance [Not Recovered/Not Resolved]
